FAERS Safety Report 11162659 (Version 1)
Quarter: 2015Q2

REPORT INFORMATION
  Report Type: Spontaneous
  Country: US (occurrence: US)
  Receive Date: 20150604
  Receipt Date: 20150604
  Transmission Date: 20150821
  Serious: No
  Sender: FDA-Public Use
  Company Number: US-SA-2015SA001411

PATIENT
  Age: 87 Year
  Sex: Female

DRUGS (3)
  1. LANTUS SOLOSTAR [Suspect]
     Active Substance: INSULIN GLARGINE
     Indication: TYPE 2 DIABETES MELLITUS
     Dosage: 8-10 UNITS OF LANTUS AT BED TIME
     Route: 065
  2. HUMALOG [Concomitant]
     Active Substance: INSULIN LISPRO
     Dosage: 3 HUMALOG SHOTS PER DAY (5-6 UNITS).
  3. LANTUS SOLOSTAR [Suspect]
     Active Substance: INSULIN GLARGINE
     Indication: TYPE 2 DIABETES MELLITUS
     Dosage: DOSE:8 UNIT(S)
     Route: 065

REACTIONS (6)
  - Incontinence [Unknown]
  - Pollakiuria [Unknown]
  - Dry skin [Unknown]
  - Blood glucose increased [Unknown]
  - Micturition urgency [Unknown]
  - Alopecia [Unknown]
